FAERS Safety Report 12304639 (Version 9)
Quarter: 2016Q4

REPORT INFORMATION
  Report Type: Report from Study
  Country: DE (occurrence: DE)
  Receive Date: 20160426
  Receipt Date: 20161121
  Transmission Date: 20170207
  Serious: Yes (Other)
  Sender: FDA-Public Use
  Company Number: DE-ROCHE-1745741

PATIENT
  Age: 71 Year
  Sex: Male
  Weight: 75 kg

DRUGS (16)
  1. CISPLATIN. [Suspect]
     Active Substance: CISPLATIN
     Indication: HER-2 POSITIVE GASTRIC CANCER
     Dosage: MOST RECENT DOSE OF CISPLATIN (110 MG) PRIOR TO AE ONSET ON 27/OCT/2014.
     Route: 042
     Dates: start: 20140714
  2. TAMSULOSIN [Concomitant]
     Active Substance: TAMSULOSIN
     Indication: PROPHYLAXIS
     Route: 048
     Dates: start: 2011
  3. DEXAMETHASON [Concomitant]
     Active Substance: DEXAMETHASONE
     Indication: NAUSEA
     Route: 042
     Dates: start: 20140714
  4. DEXAMETHASON [Concomitant]
     Active Substance: DEXAMETHASONE
     Route: 048
     Dates: start: 20140714
  5. TRASTUZUMAB [Suspect]
     Active Substance: TRASTUZUMAB
     Indication: HER-2 POSITIVE GASTRIC CANCER
     Route: 042
     Dates: start: 20140714, end: 20140714
  6. CAPECITABINE. [Suspect]
     Active Substance: CAPECITABINE
     Indication: HER-2 POSITIVE GASTRIC CANCER
     Dosage: MOST RECENT DOSE ON 12/JAN/2015.?DOSE AS PER PROTOCOL: 1000 MG/M2
     Route: 048
     Dates: start: 20140715
  7. PLASTULEN DUO [Concomitant]
     Indication: PROPHYLAXIS
     Route: 048
     Dates: start: 2011
  8. KEVATRIL [Concomitant]
     Active Substance: GRANISETRON HYDROCHLORIDE
     Indication: NAUSEA
     Route: 042
     Dates: start: 20140714
  9. PLACEBO [Suspect]
     Active Substance: UNSPECIFIED INGREDIENT
     Indication: HER-2 POSITIVE GASTRIC CANCER
     Dosage: MOST RECENT DOSE ON 17/MAR/2016
     Route: 042
     Dates: start: 20140714
  10. SODIUM CHLORIDE. [Concomitant]
     Active Substance: SODIUM CHLORIDE
     Indication: PROPHYLAXIS
     Route: 042
     Dates: start: 20140714
  11. TRASTUZUMAB [Suspect]
     Active Substance: TRASTUZUMAB
     Dosage: MOST RECENT DOSE OF TRASTUZUMAB PRIOR TO EVENT ONSET ON 17/MAR/2016
     Route: 042
     Dates: start: 20140804
  12. EMEND [Concomitant]
     Active Substance: APREPITANT
     Route: 048
     Dates: start: 20140715
  13. URIDINE. [Concomitant]
     Active Substance: URIDINE
     Indication: PALMAR-PLANTAR ERYTHRODYSAESTHESIA SYNDROME
     Route: 065
     Dates: start: 20141117
  14. EMEND [Concomitant]
     Active Substance: APREPITANT
     Indication: NAUSEA
     Route: 048
     Dates: start: 20140714
  15. FUROSEMID [Concomitant]
     Active Substance: FUROSEMIDE
     Indication: PROPHYLAXIS
     Route: 042
     Dates: start: 20140714
  16. SIMVASTATIN. [Concomitant]
     Active Substance: SIMVASTATIN
     Indication: ISCHAEMIC CEREBRAL INFARCTION
     Route: 048
     Dates: start: 20160712

REACTIONS (1)
  - Myelodysplastic syndrome [Not Recovered/Not Resolved]

NARRATIVE: CASE EVENT DATE: 20160419
